FAERS Safety Report 15335762 (Version 2)
Quarter: 2020Q1

REPORT INFORMATION
  Report Type: Report from Study
  Country: GB (occurrence: GB)
  Receive Date: 20180830
  Receipt Date: 20200211
  Transmission Date: 20200409
  Serious: Yes (Death, Hospitalization, Other)
  Sender: FDA-Public Use
  Company Number: GB-ASTRAZENECA-2016SF05088

PATIENT
  Age: 25562 Day
  Sex: Male

DRUGS (10)
  1. SALMETEROL [Concomitant]
     Active Substance: SALMETEROL
     Indication: CHRONIC OBSTRUCTIVE PULMONARY DISEASE
     Dosage: 50.0UG AS REQUIRED
     Route: 055
  2. AMLODIPINE [Concomitant]
     Active Substance: AMLODIPINE BESYLATE
     Indication: HYPERTENSION
     Route: 048
  3. MEDI4736 [Suspect]
     Active Substance: DURVALUMAB
     Indication: BLADDER CANCER
     Dosage: 1.5G ONCE/SINGLE ADMINISTRATION
     Route: 042
     Dates: start: 20160812, end: 20160812
  4. SALBUTAMOL [Concomitant]
     Active Substance: ALBUTEROL
     Indication: CHRONIC OBSTRUCTIVE PULMONARY DISEASE
     Dosage: 200.0UG AS REQUIRED
     Route: 055
  5. TAMSULOSIN [Concomitant]
     Active Substance: TAMSULOSIN
     Indication: URINARY RETENTION
     Route: 048
  6. MEDI4736 [Suspect]
     Active Substance: DURVALUMAB
     Indication: BLADDER CANCER
     Dosage: 1.5G ONCE/SINGLE ADMINISTRATION
     Route: 042
     Dates: start: 20160715, end: 20160715
  7. QUININE BISULFATE [Concomitant]
     Active Substance: QUININE BISULFATE
     Indication: MUSCLE SPASMS
     Route: 048
  8. SIMVASTATIN. [Concomitant]
     Active Substance: SIMVASTATIN
     Indication: BLOOD CHOLESTEROL INCREASED
     Route: 048
  9. MORPHINE SULPHATE TABLETS [Concomitant]
     Indication: BACK PAIN
     Route: 048
  10. ORAMORPH [Concomitant]
     Active Substance: MORPHINE SULFATE
     Indication: BACK PAIN
     Route: 048

REACTIONS (1)
  - Immune-mediated neuropathy [Not Recovered/Not Resolved]

NARRATIVE: CASE EVENT DATE: 20160730
